FAERS Safety Report 25917886 (Version 2)
Quarter: 2025Q4

REPORT INFORMATION
  Report Type: Spontaneous
  Country: EU (occurrence: EU)
  Receive Date: 20251014
  Receipt Date: 20251017
  Transmission Date: 20260118
  Serious: Yes (Death, Other)
  Sender: TEVA
  Company Number: EU-TEVA-VS-3381726

PATIENT
  Age: 85 Year
  Sex: Male

DRUGS (1)
  1. OXYCODONE [Suspect]
     Active Substance: OXYCODONE
     Indication: Pain
     Dosage: 30 TABLETS
     Route: 048
     Dates: start: 20250929

REACTIONS (5)
  - Death [Fatal]
  - Wrong technique in product usage process [Unknown]
  - Product impurity [Unknown]
  - Dysphagia [Unknown]
  - Poor quality product administered [Unknown]

NARRATIVE: CASE EVENT DATE: 20250101
